FAERS Safety Report 9153316 (Version 1)
Quarter: 2013Q1

REPORT INFORMATION
  Report Type: Spontaneous
  Country: US (occurrence: None)
  Receive Date: 20130304
  Receipt Date: 20130304
  Transmission Date: 20140127
  Serious: No
  Sender: FDA-Public Use
  Company Number: None

PATIENT
  Age: 69 Year
  Sex: Female
  Weight: 72.12 kg

DRUGS (1)
  1. ALENDRONATE SODIUM 70MG GENERIC [Suspect]
     Indication: OSTEOPOROSIS
     Dosage: 1 TABLE ONCE WEEKLY PO
     Route: 048
     Dates: start: 20120315, end: 20130204

REACTIONS (5)
  - Muscle spasms [None]
  - Loss of control of legs [None]
  - Myalgia [None]
  - Activities of daily living impaired [None]
  - Muscle tightness [None]
